FAERS Safety Report 5535002-5 (Version None)
Quarter: 2007Q4

REPORT INFORMATION
  Report Type: 
  Country: None (occurrence: None)
  Receive Date: 20071205
  Receipt Date: 20071127
  Transmission Date: 20080405
  Serious: Yes (Other)
  Sender: FDA-Public Use
  Company Number: JP-ABBOTT-07P-087-0426120-00

PATIENT
  Age: 24 Year
  Sex: Female

DRUGS (2)
  1. BIPERIDEN HYDROCHLORIDE TAB [Suspect]
     Indication: SCHIZOPHRENIA
     Dosage: NOT REPORTED
  2. BROMPERIDOL [Suspect]
     Indication: SCHIZOPHRENIA
     Dosage: NOT REPORTED

REACTIONS (1)
  - NEUROLEPTIC MALIGNANT SYNDROME [None]
